FAERS Safety Report 7208083-0 (Version None)
Quarter: 2011Q1

REPORT INFORMATION
  Report Type: 
  Country: None (occurrence: None)
  Receive Date: 20110104
  Receipt Date: 20101228
  Transmission Date: 20110831
  Serious: No
  Sender: FDA-Public Use
  Company Number: US-PFIZER INC-2010181971

PATIENT

DRUGS (1)
  1. ADVIL [Suspect]

REACTIONS (1)
  - ABDOMINAL DISCOMFORT [None]
